FAERS Safety Report 8879774 (Version 2)
Quarter: 2013Q4

REPORT INFORMATION
  Report Type: Report from Study
  Country: JP (occurrence: JP)
  Receive Date: 20121101
  Receipt Date: 20131113
  Transmission Date: 20140711
  Serious: Yes (Hospitalization)
  Sender: FDA-Public Use
  Company Number: JP-VERTEX PHARMACEUTICAL INC.-AE-2012-005684

PATIENT
  Age: 47 Year
  Sex: Male

DRUGS (14)
  1. VX-950 (TELAPREVIR) [Suspect]
     Indication: CHRONIC HEPATITIS C
     Dosage: 2250 MG, QD
     Route: 048
     Dates: start: 20120405, end: 20120419
  2. VX-950 (TELAPREVIR) [Suspect]
     Dosage: 2250 MG, QD
     Route: 048
     Dates: start: 20120426, end: 20120627
  3. PEGINTRON [Suspect]
     Indication: CHRONIC HEPATITIS C
     Dosage: 1.4 ?G/KG, QW
     Route: 058
     Dates: start: 20120405
  4. REBETOL [Suspect]
     Indication: CHRONIC HEPATITIS C
     Dosage: 800 MG, QD
     Route: 048
     Dates: start: 20120405, end: 20120419
  5. REBETOL [Suspect]
     Dosage: 800 MG, QD
     Route: 048
     Dates: start: 20120426, end: 20120523
  6. REBETOL [Suspect]
     Dosage: 600 MG, QD
     Route: 048
     Dates: start: 20120524, end: 20120822
  7. REBETOL [Suspect]
     Dosage: 800 MG, QD
     Route: 048
     Dates: start: 20120823
  8. TAKEPRON [Concomitant]
     Dosage: 15 MG, QD
     Route: 048
     Dates: start: 20120405, end: 20120419
  9. TAKEPRON [Concomitant]
     Dosage: 15 MG, QD
     Route: 048
     Dates: start: 20120426
  10. ALLEGRA [Concomitant]
     Dosage: 60 MG, QD
     Route: 048
     Dates: start: 20120405, end: 20120419
  11. ALLEGRA [Concomitant]
     Dosage: 60 MG, QD
     Route: 048
     Dates: start: 20120426, end: 20120724
  12. VONAFEC [Concomitant]
     Dosage: 50 MG, QD, PRN
     Route: 054
     Dates: start: 20120405, end: 20120419
  13. ZYLORIC [Concomitant]
     Dosage: 100 MG, QD
     Route: 048
     Dates: start: 20120517
  14. CRAVIT [Concomitant]
     Dosage: 500 MG, QD
     Route: 048
     Dates: start: 20120920

REACTIONS (3)
  - Bradycardia [Recovered/Resolved]
  - Muscular weakness [Recovered/Resolved]
  - Thirst [Recovered/Resolved]
